FAERS Safety Report 24464315 (Version 1)
Quarter: 2024Q4

REPORT INFORMATION
  Report Type: Spontaneous
  Country: US (occurrence: US)
  Receive Date: 20241018
  Receipt Date: 20241018
  Transmission Date: 20250114
  Serious: No
  Sender: ROCHE
  Company Number: US-ROCHE-3498406

PATIENT
  Sex: Female

DRUGS (3)
  1. XOLAIR [Suspect]
     Active Substance: OMALIZUMAB
     Indication: Hypergammaglobulinaemia
     Route: 058
     Dates: start: 202401
  2. XOLAIR [Suspect]
     Active Substance: OMALIZUMAB
     Indication: Immunodeficiency
  3. HYQVIA [Concomitant]
     Active Substance: HUMAN IMMUNOGLOBULIN G\HYALURONIDASE (HUMAN RECOMBINANT)

REACTIONS (5)
  - Off label use [Unknown]
  - Micturition frequency decreased [Unknown]
  - Dyspnoea [Unknown]
  - Peripheral swelling [Unknown]
  - Joint swelling [Unknown]
